FAERS Safety Report 20367287 (Version 2)
Quarter: 2022Q1

REPORT INFORMATION
  Report Type: Spontaneous
  Country: US (occurrence: US)
  Receive Date: 20220123
  Receipt Date: 20220213
  Transmission Date: 20220424
  Serious: No
  Sender: FDA-Public Use
  Company Number: US-JNJFOC-20220131660

PATIENT
  Sex: Female

DRUGS (1)
  1. REMICADE [Suspect]
     Active Substance: INFLIXIMAB
     Indication: Product used for unknown indication
     Route: 042

REACTIONS (1)
  - Therapeutic product effect decreased [Unknown]
